FAERS Safety Report 15198424 (Version 2)
Quarter: 2018Q4

REPORT INFORMATION
  Report Type: Report from Study
  Country: US (occurrence: US)
  Receive Date: 20180725
  Receipt Date: 20181019
  Transmission Date: 20190204
  Serious: No
  Sender: FDA-Public Use
  Company Number: US-AMGEN-USASL2018093128

PATIENT
  Age: 74 Year
  Sex: Female

DRUGS (2)
  1. REPATHA [Suspect]
     Active Substance: EVOLOCUMAB
     Indication: HYPERCHOLESTEROLAEMIA
     Dosage: 140 MG, Q2WK
     Route: 065
  2. REPATHA [Suspect]
     Active Substance: EVOLOCUMAB
     Indication: HYPERLIPIDAEMIA
     Dosage: 140 MG, Q2WK
     Route: 065
     Dates: start: 20180607

REACTIONS (14)
  - Diarrhoea [Not Recovered/Not Resolved]
  - Burning sensation [Unknown]
  - Injection site bruising [Unknown]
  - Sleep disorder [Unknown]
  - Dyspnoea [Unknown]
  - Limb injury [Unknown]
  - Pruritus [Unknown]
  - Heart rate increased [Unknown]
  - Laboratory test abnormal [Unknown]
  - Mass [Unknown]
  - Malaise [Unknown]
  - Nightmare [Unknown]
  - Cough [Unknown]
  - Nasopharyngitis [Unknown]

NARRATIVE: CASE EVENT DATE: 2018
